FAERS Safety Report 8432986-2 (Version None)
Quarter: 2012Q2

REPORT INFORMATION
  Report Type: 
  Country: None (occurrence: None)
  Receive Date: 20120613
  Receipt Date: 20120607
  Transmission Date: 20120825
  Serious: Yes (Other)
  Sender: FDA-Public Use
  Company Number: US-ROCHE-1076275

PATIENT
  Sex: Female

DRUGS (1)
  1. BONIVA [Suspect]
     Indication: OSTEOPENIA
     Route: 048
     Dates: start: 20060101, end: 20110101

REACTIONS (7)
  - RIB FRACTURE [None]
  - BONE DISORDER [None]
  - SPINAL FRACTURE [None]
  - BONE DENSITY DECREASED [None]
  - ULNA FRACTURE [None]
  - WRIST FRACTURE [None]
  - STRESS FRACTURE [None]
